FAERS Safety Report 5124477-1 (Version None)
Quarter: 2006Q4

REPORT INFORMATION
  Report Type: 
  Country: None (occurrence: None)
  Receive Date: 20061006
  Receipt Date: 20061003
  Transmission Date: 20070319
  Serious: Yes (Hospitalization)
  Sender: FDA-Public Use
  Company Number: B0440664A

PATIENT
  Age: 53 Year
  Sex: Female

DRUGS (9)
  1. AMOXIL [Suspect]
     Indication: DENTAL CARE
     Dosage: 1 GRAM (S)/TWICE PER DAY/ORAL
     Route: 048
     Dates: start: 20060510, end: 20060517
  2. IBUPROFEN [Concomitant]
  3. ACITRETRIN [Concomitant]
  4. DESONIDE [Concomitant]
  5. BETAMETHASONE DIPROPION [Concomitant]
  6. WHITE SOFT PARAFFIN [Concomitant]
  7. DIPROSALIC [Concomitant]
  8. LEVOTHYROXINE SODIUM [Concomitant]
  9. PRAVASTATIN SODIUM [Concomitant]

REACTIONS (7)
  - DERMATITIS ALLERGIC [None]
  - ERYTHEMA [None]
  - GENERALISED ERYTHEMA [None]
  - HYPERSENSITIVITY [None]
  - PYREXIA [None]
  - RASH PUSTULAR [None]
  - SKIN EXFOLIATION [None]
